FAERS Safety Report 5685023-7 (Version None)
Quarter: 2008Q1

REPORT INFORMATION
  Report Type: 
  Country: None (occurrence: None)
  Receive Date: 20080328
  Receipt Date: 19971114
  Transmission Date: 20080703
  Serious: Yes (Death, Life-Threatening)
  Sender: FDA-Public Use
  Company Number: FR-ROCHE-90370

PATIENT
  Age: 60 Year
  Sex: Male

DRUGS (2)
  1. TICLOPIDINE HCL [Suspect]
     Indication: ARTERITIS
     Route: 048
     Dates: start: 19970901, end: 19971013
  2. ACETYLSALICYLIC ACID SRT [Concomitant]

REACTIONS (2)
  - DEATH [None]
  - HAEMORRHAGE [None]
